FAERS Safety Report 7549168-9 (Version None)
Quarter: 2011Q2

REPORT INFORMATION
  Report Type: 
  Country: None (occurrence: None)
  Receive Date: 20110615
  Receipt Date: 20110601
  Transmission Date: 20111010
  Serious: Yes (Other)
  Sender: FDA-Public Use
  Company Number: PHHY2011US48253

PATIENT
  Sex: Female

DRUGS (1)
  1. ZOMETA [Suspect]

REACTIONS (4)
  - ARTHRALGIA [None]
  - MYALGIA [None]
  - BONE DENSITY ABNORMAL [None]
  - FRACTURE [None]
